FAERS Safety Report 24569519 (Version 3)
Quarter: 2024Q4

REPORT INFORMATION
  Report Type: Spontaneous
  Country: AT (occurrence: AT)
  Receive Date: 20241031
  Receipt Date: 20241220
  Transmission Date: 20250115
  Serious: Yes (Other)
  Sender: NOVO NORDISK
  Company Number: AT-NOVOPROD-1298459

PATIENT
  Age: 8 Year
  Sex: Male
  Weight: 34.6 kg

DRUGS (5)
  1. ESPEROCT [Suspect]
     Active Substance: ANTIHEMOPHILIC FACTOR, HUMAN RECOMBINANT
     Indication: Prophylaxis
     Dosage: 3000.00 IU, QW(3X 1000/WEEK)
     Dates: start: 20240916, end: 20240921
  2. ESPEROCT [Suspect]
     Active Substance: ANTIHEMOPHILIC FACTOR, HUMAN RECOMBINANT
     Dosage: 3000.00 IU, QW(3X 1000/WEEK)
     Dates: start: 20240918
  3. ESPEROCT [Suspect]
     Active Substance: ANTIHEMOPHILIC FACTOR, HUMAN RECOMBINANT
     Indication: Factor VIII deficiency
     Dosage: 3000.00 IU, QW(3X 1000/WEEK)
     Dates: start: 20240913
  4. ESPEROCT [Suspect]
     Active Substance: ANTIHEMOPHILIC FACTOR, HUMAN RECOMBINANT
     Dosage: ADDITIONAL DOSE FOR BLEED
     Dates: start: 20240921, end: 20240921
  5. ESPEROCT [Suspect]
     Active Substance: ANTIHEMOPHILIC FACTOR, HUMAN RECOMBINANT
     Dosage: 3000.00 IU, QW(3X 1000/WEEK)
     Dates: start: 20240920

REACTIONS (13)
  - Haematoma [Recovering/Resolving]
  - Joint swelling [Recovering/Resolving]
  - Joint swelling [Recovering/Resolving]
  - Respiration abnormal [Recovered/Resolved]
  - Lip discolouration [Recovered/Resolved]
  - Pallor [Recovered/Resolved]
  - Hyperhidrosis [Recovered/Resolved]
  - Asthenia [Recovered/Resolved]
  - Anti-polyethylene glycol antibody present [Unknown]
  - Drug intolerance [Recovered/Resolved]
  - Coagulation factor VIII level decreased [Unknown]
  - Haemorrhage [Recovering/Resolving]
  - Drug ineffective [Recovered/Resolved]

NARRATIVE: CASE EVENT DATE: 20240101
